FAERS Safety Report 20460549 (Version 1)
Quarter: 2022Q1

REPORT INFORMATION
  Report Type: Spontaneous
  Country: US (occurrence: None)
  Receive Date: 20220210
  Receipt Date: 20220210
  Transmission Date: 20220424
  Serious: Yes (Hospitalization)
  Sender: FDA-Public Use
  Company Number: None

PATIENT
  Age: 48 Year
  Sex: Female
  Weight: 92.3 kg

DRUGS (9)
  1. HYDROXYCHLOROQUINE [Suspect]
     Active Substance: HYDROXYCHLOROQUINE
     Indication: Systemic lupus erythematosus
     Dosage: FREQUENCY : DAILY;?
     Route: 048
     Dates: start: 20220201, end: 20220209
  2. Baclofen 10 mg TID [Concomitant]
  3. Clonidine 0.1 mg TID [Concomitant]
  4. Linzess 145 mcg BID [Concomitant]
  5. Metoprolol 25 mg BID [Concomitant]
  6. Prednisone 10 mg QD [Concomitant]
  7. Lyrica 100 mg TID [Concomitant]
  8. Quetiapine 50 mg BID + 100 mg QHS [Concomitant]
  9. Rosuvastatin 10 mg QD [Concomitant]

REACTIONS (3)
  - Dyskinesia [None]
  - Muscle twitching [None]
  - Tremor [None]

NARRATIVE: CASE EVENT DATE: 20220209
